FAERS Safety Report 10112212 (Version 2)
Quarter: 2014Q2

REPORT INFORMATION
  Report Type: Report from Study
  Country: GB (occurrence: GB)
  Receive Date: 20140425
  Receipt Date: 20140425
  Transmission Date: 20141212
  Serious: Yes (Other)
  Sender: FDA-Public Use
  Company Number: GB-VERTEX PHARMACEUTICALS INC-2014-001311

PATIENT
  Age: 41 Year
  Sex: Male

DRUGS (3)
  1. VX-950 (TELAPREVIR) [Suspect]
     Indication: HEPATITIS C
     Dosage: UNK, BID
     Route: 048
     Dates: start: 20140218
  2. PEG INTERFERON [Suspect]
     Indication: HEPATITIS C
     Dosage: UNK, QW
     Route: 058
     Dates: start: 20140218
  3. RIBAVIRIN [Suspect]
     Indication: HEPATITIS C
     Dosage: UNK, BID
     Route: 048
     Dates: start: 20140218

REACTIONS (8)
  - White blood cell count decreased [Unknown]
  - Depressed mood [Not Recovered/Not Resolved]
  - Dry mouth [Not Recovered/Not Resolved]
  - Lethargy [Not Recovered/Not Resolved]
  - Asthenia [Unknown]
  - Pruritus [Unknown]
  - Rash pruritic [Not Recovered/Not Resolved]
  - Rash [Not Recovered/Not Resolved]
